FAERS Safety Report 5068369-5 (Version None)
Quarter: 2006Q3

REPORT INFORMATION
  Report Type: 
  Country: None (occurrence: None)
  Receive Date: 20060802
  Receipt Date: 20050824
  Transmission Date: 20061208
  Serious: No
  Sender: FDA-Public Use
  Company Number: US-BRISTOL-MYERS SQUIBB COMPANY-13088794

PATIENT
  Age: 87 Year
  Sex: Male
  Weight: 75 kg

DRUGS (3)
  1. COUMADIN [Suspect]
     Indication: ATRIAL FIBRILLATION
     Dosage: DURATION: 6 MONTHS; DOSE WAS REDUCED, THEN STOPPED D/T INR; RESTARTED 8/23/05 AT 2.5 MG DAILY
     Dates: start: 20050101
  2. DIOVAN [Concomitant]
  3. ZOLADEX [Concomitant]

REACTIONS (2)
  - CONTUSION [None]
  - INTERNATIONAL NORMALISED RATIO ABNORMAL [None]
